FAERS Safety Report 21843109 (Version 2)
Quarter: 2023Q1

REPORT INFORMATION
  Report Type: Spontaneous
  Country: IT (occurrence: IT)
  Receive Date: 20230110
  Receipt Date: 20230303
  Transmission Date: 20230418
  Serious: Yes (Death, Other)
  Sender: FDA-Public Use
  Company Number: IT-AMGEN-ITASP2023002048

PATIENT
  Age: 25 Year
  Sex: Female

DRUGS (2)
  1. MVASI [Suspect]
     Active Substance: BEVACIZUMAB-AWWB
     Indication: Anaplastic meningioma
     Dosage: UNK
     Route: 065
     Dates: start: 2022
  2. EVEROLIMUS [Concomitant]
     Active Substance: EVEROLIMUS
     Indication: Anaplastic meningioma
     Dosage: UNK
     Route: 065
     Dates: start: 20190501, end: 20211101

REACTIONS (2)
  - Death [Fatal]
  - Off label use [Unknown]

NARRATIVE: CASE EVENT DATE: 20220101
